FAERS Safety Report 16082162 (Version 8)
Quarter: 2022Q1

REPORT INFORMATION
  Report Type: Spontaneous
  Country: CA (occurrence: CA)
  Receive Date: 20190317
  Receipt Date: 20220217
  Transmission Date: 20220423
  Serious: Yes (Other)
  Sender: FDA-Public Use
  Company Number: CA-SAMSUNG BIOEPIS-SB-2019-06097

PATIENT
  Age: 6 Year
  Sex: Female
  Weight: 28 kg

DRUGS (58)
  1. INFLIXIMAB [Suspect]
     Active Substance: INFLIXIMAB
     Indication: Juvenile idiopathic arthritis
     Route: 065
  2. INFLIXIMAB [Suspect]
     Active Substance: INFLIXIMAB
     Route: 065
  3. INFLIXIMAB [Suspect]
     Active Substance: INFLIXIMAB
     Route: 065
  4. ENBREL [Suspect]
     Active Substance: ETANERCEPT
     Indication: Juvenile idiopathic arthritis
     Route: 065
  5. ENBREL [Suspect]
     Active Substance: ETANERCEPT
     Route: 065
  6. ACTEMRA [Suspect]
     Active Substance: TOCILIZUMAB
     Indication: Immunosuppressant drug therapy
     Route: 065
  7. ACTEMRA [Suspect]
     Active Substance: TOCILIZUMAB
     Indication: Juvenile idiopathic arthritis
     Route: 065
  8. ACTEMRA [Suspect]
     Active Substance: TOCILIZUMAB
     Dosage: UNKNOWN
     Route: 065
  9. ASPIRIN [Suspect]
     Active Substance: ASPIRIN
     Indication: Juvenile idiopathic arthritis
     Route: 065
  10. ASPIRIN [Suspect]
     Active Substance: ASPIRIN
     Route: 065
  11. ASPIRIN [Suspect]
     Active Substance: ASPIRIN
     Route: 065
  12. CELECOXIB [Suspect]
     Active Substance: CELECOXIB
     Indication: Juvenile idiopathic arthritis
     Route: 065
  13. CELECOXIB [Suspect]
     Active Substance: CELECOXIB
     Route: 065
  14. CELECOXIB [Suspect]
     Active Substance: CELECOXIB
     Route: 065
  15. CELECOXIB [Suspect]
     Active Substance: CELECOXIB
     Route: 048
  16. CYCLOSPORINE [Suspect]
     Active Substance: CYCLOSPORINE
     Indication: Juvenile idiopathic arthritis
     Route: 065
  17. CYCLOSPORINE [Suspect]
     Active Substance: CYCLOSPORINE
     Route: 065
  18. HUMAN IMMUNOGLOBULIN G [Suspect]
     Active Substance: HUMAN IMMUNOGLOBULIN G
     Indication: Juvenile idiopathic arthritis
     Dosage: SOLUTION INTRAVENOUS
     Route: 065
  19. KINERET [Suspect]
     Active Substance: ANAKINRA
     Indication: Juvenile idiopathic arthritis
     Dosage: SOLUTION SUBCUTANEOUS
     Route: 065
  20. KINERET [Suspect]
     Active Substance: ANAKINRA
     Dosage: SOLUTION SUBCUTANEOUS
     Route: 065
  21. KINERET [Suspect]
     Active Substance: ANAKINRA
     Dosage: SOLUTION SUBCUTANEOUS
     Route: 065
  22. KINERET [Suspect]
     Active Substance: ANAKINRA
     Route: 065
  23. KINERET [Suspect]
     Active Substance: ANAKINRA
     Route: 065
  24. KINERET [Suspect]
     Active Substance: ANAKINRA
     Route: 065
  25. METHOTREXATE [Suspect]
     Active Substance: METHOTREXATE
     Indication: Juvenile idiopathic arthritis
     Route: 065
  26. METHOTREXATE [Suspect]
     Active Substance: METHOTREXATE
     Indication: Immunosuppressant drug therapy
     Route: 065
  27. METHOTREXATE [Suspect]
     Active Substance: METHOTREXATE
     Route: 065
  28. METHOTREXATE [Suspect]
     Active Substance: METHOTREXATE
     Route: 065
  29. PREDNISONE [Suspect]
     Active Substance: PREDNISONE
     Indication: Still^s disease
     Route: 065
  30. PREDNISONE [Suspect]
     Active Substance: PREDNISONE
     Route: 065
  31. PREDNISONE [Suspect]
     Active Substance: PREDNISONE
     Route: 065
  32. PREDNISONE [Suspect]
     Active Substance: PREDNISONE
     Route: 065
  33. TINZAPARIN [Suspect]
     Active Substance: TINZAPARIN
     Indication: Product used for unknown indication
     Route: 065
  34. TINZAPARIN [Suspect]
     Active Substance: TINZAPARIN
     Route: 065
  35. TINZAPARIN [Suspect]
     Active Substance: TINZAPARIN
     Dosage: UNKNOWN
     Route: 065
  36. TINZAPARIN [Suspect]
     Active Substance: TINZAPARIN
     Route: 042
  37. TINZAPARIN [Suspect]
     Active Substance: TINZAPARIN
     Route: 065
  38. TINZAPARIN [Suspect]
     Active Substance: TINZAPARIN
     Route: 065
  39. HYDROCORTISONE [Suspect]
     Active Substance: HYDROCORTISONE
     Indication: Juvenile idiopathic arthritis
     Dosage: UNKNOWN
     Route: 065
  40. HYDROCORTISONE [Suspect]
     Active Substance: HYDROCORTISONE
     Route: 065
  41. ANAKINRA [Suspect]
     Active Substance: ANAKINRA
     Indication: Juvenile idiopathic arthritis
     Route: 065
  42. ANAKINRA [Suspect]
     Active Substance: ANAKINRA
     Route: 065
  43. ANAKINRA [Suspect]
     Active Substance: ANAKINRA
     Route: 065
  44. ANAKINRA [Suspect]
     Active Substance: ANAKINRA
     Route: 065
  45. ANAKINRA [Suspect]
     Active Substance: ANAKINRA
     Route: 058
  46. ANAKINRA [Suspect]
     Active Substance: ANAKINRA
     Route: 058
  47. ANAKINRA [Suspect]
     Active Substance: ANAKINRA
     Route: 058
  48. IMMUNE GLOBULIN NOS [Suspect]
     Active Substance: IMMUNE GLOBULIN NOS
     Indication: Juvenile idiopathic arthritis
     Dosage: UNKNOWN
     Route: 042
  49. IMMUNE GLOBULIN NOS [Suspect]
     Active Substance: IMMUNE GLOBULIN NOS
     Route: 042
  50. INDOMETHACIN [Suspect]
     Active Substance: INDOMETHACIN
     Indication: Still^s disease
     Route: 065
  51. INDOMETHACIN [Suspect]
     Active Substance: INDOMETHACIN
     Route: 065
  52. REMICADE [Suspect]
     Active Substance: INFLIXIMAB
     Indication: Juvenile idiopathic arthritis
     Dosage: UNKNOWN
     Route: 065
  53. REMICADE [Suspect]
     Active Substance: INFLIXIMAB
     Route: 042
  54. REMICADE [Suspect]
     Active Substance: INFLIXIMAB
     Dosage: POWDER FOR SOLUTION INTRAVENOUS
     Route: 042
  55. GAMMAGARD [Suspect]
     Active Substance: HUMAN IMMUNOGLOBULIN G
     Indication: Juvenile idiopathic arthritis
     Dosage: UNKNOWN
     Route: 065
  56. HUMAN IMMUNOGLOBULIN G [Suspect]
     Active Substance: HUMAN IMMUNOGLOBULIN G
     Indication: Juvenile idiopathic arthritis
     Route: 042
  57. HUMAN IMMUNOGLOBULIN G [Suspect]
     Active Substance: HUMAN IMMUNOGLOBULIN G
     Dosage: UNKNOWN
     Route: 065
  58. HYDROCORTISONE [Concomitant]
     Active Substance: HYDROCORTISONE
     Indication: Juvenile idiopathic arthritis
     Dosage: UNKNOWN
     Route: 065

REACTIONS (5)
  - Adrenal suppression [Unknown]
  - Antinuclear antibody positive [Unknown]
  - Psoriasis [Unknown]
  - Intentional product use issue [Not Recovered/Not Resolved]
  - Product use in unapproved indication [Unknown]
